FAERS Safety Report 4365707-3 (Version None)
Quarter: 2004Q2

REPORT INFORMATION
  Report Type: 
  Country: None (occurrence: None)
  Receive Date: 20040526
  Receipt Date: 20040526
  Transmission Date: 20050107
  Serious: Yes (Other)
  Sender: FDA-Public Use
  Company Number: None

PATIENT
  Sex: Female
  Weight: 130.1823 kg

DRUGS (2)
  1. LANTUS [Suspect]
     Dosage: 24 UNITS QID SUBQ
     Route: 058
     Dates: start: 20030410, end: 20040513
  2. LANTUS [Suspect]

REACTIONS (1)
  - MYALGIA [None]
